FAERS Safety Report 14671859 (Version 3)
Quarter: 2022Q4

REPORT INFORMATION
  Report Type: Spontaneous
  Country: US (occurrence: US)
  Receive Date: 20180323
  Receipt Date: 20221114
  Transmission Date: 20230112
  Serious: No
  Sender: FDA-Public Use
  Company Number: US-BIOGENIDEC-2015BI007341

PATIENT
  Sex: Female

DRUGS (23)
  1. AVONEX [Suspect]
     Active Substance: INTERFERON BETA-1A
     Indication: Multiple sclerosis
     Route: 050
  2. AVONEX [Suspect]
     Active Substance: INTERFERON BETA-1A
     Route: 050
     Dates: start: 20040606
  3. AVONEX [Suspect]
     Active Substance: INTERFERON BETA-1A
  4. AVONEX [Suspect]
     Active Substance: INTERFERON BETA-1A
  5. AVONEX [Suspect]
     Active Substance: INTERFERON BETA-1A
  6. AVONEX [Suspect]
     Active Substance: INTERFERON BETA-1A
  7. AVONEX [Suspect]
     Active Substance: INTERFERON BETA-1A
  8. AVONEX [Suspect]
     Active Substance: INTERFERON BETA-1A
  9. AVONEX [Suspect]
     Active Substance: INTERFERON BETA-1A
  10. AVONEX [Suspect]
     Active Substance: INTERFERON BETA-1A
  11. AVONEX [Suspect]
     Active Substance: INTERFERON BETA-1A
  12. AVONEX [Suspect]
     Active Substance: INTERFERON BETA-1A
  13. AVONEX [Suspect]
     Active Substance: INTERFERON BETA-1A
  14. COPAXONE [Concomitant]
     Active Substance: GLATIRAMER ACETATE
     Indication: Multiple sclerosis relapse
     Route: 050
  15. BETASERON [Concomitant]
     Active Substance: INTERFERON BETA-1B
     Indication: Product used for unknown indication
     Route: 050
  16. NOVANTRONE [Concomitant]
     Active Substance: MITOXANTRONE HYDROCHLORIDE
     Indication: Product used for unknown indication
     Route: 050
  17. CYLERT [Concomitant]
     Active Substance: PEMOLINE
     Indication: Product used for unknown indication
     Route: 050
  18. SYMMETREL [Concomitant]
     Active Substance: AMANTADINE HYDROCHLORIDE
     Indication: Product used for unknown indication
     Route: 050
  19. NUVIGIL [Concomitant]
     Active Substance: ARMODAFINIL
     Indication: Product used for unknown indication
     Route: 050
  20. MEVACOR [Concomitant]
     Active Substance: LOVASTATIN
     Indication: Blood cholesterol
     Route: 050
  21. CARBAMAZEPINE [Concomitant]
     Active Substance: CARBAMAZEPINE
     Indication: Product used for unknown indication
     Route: 050
  22. PROTONIX [Concomitant]
     Active Substance: PANTOPRAZOLE SODIUM
     Indication: Product used for unknown indication
     Route: 050
  23. BENADRYL [Concomitant]
     Active Substance: DIPHENHYDRAMINE HYDROCHLORIDE
     Indication: Product used for unknown indication
     Route: 050

REACTIONS (14)
  - Sluggishness [Unknown]
  - Hangover [Unknown]
  - Pulmonary mass [Unknown]
  - Gallbladder disorder [Unknown]
  - Gastrointestinal disorder [Unknown]
  - Vertigo [Unknown]
  - Thymus enlargement [Unknown]
  - Magnetic resonance imaging abnormal [Unknown]
  - Memory impairment [Unknown]
  - Visual acuity reduced [Unknown]
  - Fatigue [Unknown]
  - Fall [Recovered/Resolved]
  - Road traffic accident [Recovered/Resolved]
  - Multiple sclerosis relapse [Recovered/Resolved]
